FAERS Safety Report 18206603 (Version 1)
Quarter: 2020Q3

REPORT INFORMATION
  Report Type: Report from Study
  Country: KR (occurrence: KR)
  Receive Date: 20200828
  Receipt Date: 20200828
  Transmission Date: 20201103
  Serious: Yes (Hospitalization)
  Sender: FDA-Public Use
  Company Number: KR-CELLTRION INC.-2020KR022248

PATIENT

DRUGS (7)
  1. RYTMONORM SR [Concomitant]
     Active Substance: PROPAFENONE
     Indication: ATRIAL FIBRILLATION
     Dosage: 1 TAB, QD
     Route: 048
     Dates: start: 20191111
  2. CHOP [Suspect]
     Active Substance: CYCLOPHOSPHAMIDE\DOXORUBICIN\PREDNISONE\VINCRISTINE
     Indication: CHEMOTHERAPY
     Dosage: UNK
     Dates: start: 20191024, end: 20200228
  3. TRUXIMA [Suspect]
     Active Substance: RITUXIMAB-ABBS
     Indication: DIFFUSE LARGE B-CELL LYMPHOMA
     Dosage: 615 MG, EVERY 3 WEEKS (6 DOSES)
     Route: 042
     Dates: start: 20191024, end: 20200228
  4. PANTOLOC [Concomitant]
     Active Substance: PANTOPRAZOLE SODIUM
     Indication: GASTRITIS PROPHYLAXIS
     Dosage: 1 TAB, QD
     Route: 048
     Dates: start: 20171102
  5. ATOZET [Concomitant]
     Active Substance: ATORVASTATIN CALCIUM\EZETIMIBE
     Indication: ATRIAL FIBRILLATION
     Dosage: 1 TAB, QD
     Route: 048
     Dates: start: 20191111
  6. ROSUZET [Concomitant]
     Active Substance: EZETIMIBE\ROSUVASTATIN
     Indication: HYPERLIPIDAEMIA
     Dosage: 1 TAB, QD
     Route: 048
     Dates: start: 2019
  7. XARELTO [Concomitant]
     Active Substance: RIVAROXABAN
     Indication: ATRIAL FIBRILLATION
     Dosage: 1 TAB, QD
     Route: 048
     Dates: start: 20191111

REACTIONS (1)
  - Febrile neutropenia [Recovered/Resolved]

NARRATIVE: CASE EVENT DATE: 20200307
